FAERS Safety Report 8488941-X (Version None)
Quarter: 2012Q3

REPORT INFORMATION
  Report Type: 
  Country: None (occurrence: None)
  Receive Date: 20120705
  Receipt Date: 20120620
  Transmission Date: 20120928
  Serious: Yes (Hospitalization, Other)
  Sender: FDA-Public Use
  Company Number: GB-ROCHE-1073413

PATIENT
  Sex: Female
  Weight: 57.1 kg

DRUGS (4)
  1. ZELBORAF [Suspect]
     Indication: MALIGNANT MELANOMA
     Route: 048
     Dates: start: 20120425, end: 20120522
  2. METOCLOPRAMIDE [Concomitant]
     Indication: NAUSEA
     Route: 048
     Dates: start: 20120425, end: 20120522
  3. LOSARTAN POTASSIUM [Concomitant]
     Indication: HYPERTENSION
     Route: 048
  4. DOXAZOSIN MESYLATE [Concomitant]
     Indication: HYPERTENSION
     Route: 048
     Dates: end: 20120422

REACTIONS (21)
  - ABASIA [None]
  - PYREXIA [None]
  - FEELING OF BODY TEMPERATURE CHANGE [None]
  - HYPOTENSION [None]
  - RASH [None]
  - NAUSEA [None]
  - CONFUSIONAL STATE [None]
  - DECREASED APPETITE [None]
  - VISUAL IMPAIRMENT [None]
  - ALOPECIA [None]
  - DEPRESSION [None]
  - PETIT MAL EPILEPSY [None]
  - FATIGUE [None]
  - ARTHRALGIA [None]
  - VOMITING [None]
  - MUSCULOSKELETAL PAIN [None]
  - JOINT SWELLING [None]
  - OEDEMA MOUTH [None]
  - UNRESPONSIVE TO STIMULI [None]
  - MOBILITY DECREASED [None]
  - HICCUPS [None]
